FAERS Safety Report 8301522-3 (Version None)
Quarter: 2012Q2

REPORT INFORMATION
  Report Type: 
  Country: None (occurrence: None)
  Receive Date: 20120420
  Receipt Date: 20120416
  Transmission Date: 20120825
  Serious: Yes (Hospitalization, Other)
  Sender: FDA-Public Use
  Company Number: PHHO2011US09437

PATIENT
  Sex: Male

DRUGS (12)
  1. FUROSEMIDE [Concomitant]
     Dates: start: 20110711
  2. MYCOPHENOLATE MOFETIL [Suspect]
     Indication: RENAL TRANSPLANT
     Dosage: UNK
     Dates: start: 20070723
  3. METOPROLOL SUCCINATE [Concomitant]
  4. CLONIDINE HYDROCHLORIDE [Concomitant]
  5. LIPITOR [Concomitant]
  6. COUMADIN [Suspect]
     Dosage: UNK
     Dates: start: 20110929
  7. KLOR-CON [Concomitant]
  8. NEORAL [Suspect]
     Indication: RENAL TRANSPLANT
     Dosage: 175 MG, QD
     Dates: start: 20110218
  9. ISOSORBIDE MONONITRATE [Concomitant]
  10. PREDNISONE TAB [Suspect]
     Indication: RENAL TRANSPLANT
     Dosage: 5 MG, UNK
     Dates: start: 20090723
  11. PERCOCET [Concomitant]
     Indication: HYPERTENSION
  12. HYDRALAZINE HYDROCHLORIDE [Concomitant]

REACTIONS (9)
  - HAEMATURIA [None]
  - CHEST PAIN [None]
  - TRANSITIONAL CELL CARCINOMA [None]
  - PYELONEPHRITIS [None]
  - CARDIAC FAILURE CONGESTIVE [None]
  - PNEUMONIA [None]
  - MUSCLE HAEMORRHAGE [None]
  - DIFFUSE VASCULITIS [None]
  - ISCHAEMIC STROKE [None]
